FAERS Safety Report 8467903-2 (Version None)
Quarter: 2012Q2

REPORT INFORMATION
  Report Type: 
  Country: None (occurrence: None)
  Receive Date: 20120626
  Receipt Date: 20120611
  Transmission Date: 20120825
  Serious: Yes (Hospitalization)
  Sender: FDA-Public Use
  Company Number: FR-WATSON-2012-10377

PATIENT
  Sex: Female

DRUGS (10)
  1. PRAZEPAM [Concomitant]
     Indication: PRODUCT USED FOR UNKNOWN INDICATION
     Dosage: UNK
     Route: 048
  2. HUMALOG [Concomitant]
     Indication: TYPE 1 DIABETES MELLITUS
     Dosage: UNK
     Route: 058
  3. AERIUS                             /01398501/ [Concomitant]
     Indication: ASTHMA
     Dosage: 5 MG, UNKNOWN
     Route: 048
  4. GUETHURAL                          /03567501/ [Concomitant]
     Indication: PRODUCT USED FOR UNKNOWN INDICATION
     Dosage: UNK
     Route: 048
  5. IBUPROFEN [Suspect]
     Indication: TOOTHACHE
     Dosage: 400 MG, TID
     Route: 048
     Dates: start: 20120326, end: 20120401
  6. ACETAMINOPHEN AND TRAMADOL HCL [Suspect]
     Indication: TOOTHACHE
     Dosage: 37.5 MG, TID
     Route: 048
     Dates: start: 20120326, end: 20120401
  7. ALBUTEROL [Suspect]
     Indication: ASTHMA
     Dosage: 100 MCG, TID
     Route: 055
     Dates: start: 20080101
  8. SINGULAIR [Suspect]
     Indication: ASTHMA
     Dosage: 10 MG, DAILY
     Route: 048
     Dates: start: 20120326
  9. BUDESONIDE [Suspect]
     Indication: ASTHMA
     Dosage: 1 DF, BID
     Route: 055
     Dates: start: 20090101
  10. LEVOTHYROXINE SODIUM [Concomitant]
     Indication: PRODUCT USED FOR UNKNOWN INDICATION
     Dosage: 50 MCG, UNKNOWN
     Route: 048

REACTIONS (1)
  - CEREBRAL HAEMORRHAGE [None]
